FAERS Safety Report 8854957 (Version 2)
Quarter: 2012Q4

REPORT INFORMATION
  Report Type: 
  Country: AU (occurrence: AU)
  Receive Date: 20121023
  Receipt Date: 20121031
  Transmission Date: 20130627
  Serious: Yes (Hospitalization)
  Sender: FDA-Public Use
  Company Number: AU-VERTEX PHARMACEUTICAL INC.-2012-023251

PATIENT
  Sex: Female

DRUGS (3)
  1. INCIVO [Suspect]
     Indication: PRODUCT USED FOR UNKNOWN INDICATION
     Dosage: Dosage Form: Tablet
     Route: 048
     Dates: start: 20120816, end: 20121003
  2. RIBAVIRIN [Suspect]
     Indication: PRODUCT USED FOR UNKNOWN INDICATION
     Dosage: Dosage Form: Unspecified
     Route: 065
     Dates: start: 20120816
  3. PEG INTERFERON [Suspect]
     Indication: PRODUCT USED FOR UNKNOWN INDICATION
     Dosage: Dosage Form: Unspecified
     Route: 065
     Dates: start: 20120816

REACTIONS (2)
  - Rash [Recovered/Resolved]
  - Drug reaction with eosinophilia and systemic symptoms [Not Recovered/Not Resolved]
